FAERS Safety Report 24884478 (Version 1)
Quarter: 2025Q1

REPORT INFORMATION
  Report Type: Spontaneous
  Country: US (occurrence: US)
  Receive Date: 20250124
  Receipt Date: 20250124
  Transmission Date: 20250409
  Serious: No
  Sender: ABBVIE
  Company Number: US-ABBVIE-6101962

PATIENT

DRUGS (1)
  1. DEOXYCHOLIC ACID [Suspect]
     Active Substance: DEOXYCHOLIC ACID
     Indication: Fat tissue increased
     Route: 065

REACTIONS (1)
  - Injection site mass [Not Recovered/Not Resolved]
